FAERS Safety Report 6569471-9 (Version None)
Quarter: 2010Q1

REPORT INFORMATION
  Report Type: 
  Country: None (occurrence: None)
  Receive Date: 20100204
  Receipt Date: 20100127
  Transmission Date: 20100710
  Serious: Yes (Other)
  Sender: FDA-Public Use
  Company Number: JP-BAYER-201010352BYL

PATIENT
  Age: 74 Year
  Sex: Female
  Weight: 48 kg

DRUGS (10)
  1. NEXAVAR [Suspect]
     Indication: HEPATIC NEOPLASM MALIGNANT
     Dosage: TOTAL DAILY DOSE: 800 MG  UNIT DOSE: 200 MG
     Route: 048
     Dates: start: 20100108
  2. NEXAVAR [Suspect]
     Dosage: UNIT DOSE: 200 MG
     Route: 048
  3. ONEALFA [Concomitant]
     Route: 048
  4. ALDACTONE [Concomitant]
     Route: 048
  5. OMEPRAL [Concomitant]
     Route: 048
  6. URSO 250 [Concomitant]
     Route: 048
  7. SHAKUYAKU-KANZO-TO [Concomitant]
     Route: 048
  8. CALONAL [Concomitant]
     Route: 048
  9. MEDICON [Concomitant]
     Route: 048
     Dates: start: 20100109
  10. ALLEGRA [Concomitant]
     Route: 048
     Dates: start: 20100117

REACTIONS (3)
  - DIZZINESS [None]
  - HYPERTENSION [None]
  - PALMAR-PLANTAR ERYTHRODYSAESTHESIA SYNDROME [None]
